FAERS Safety Report 17645747 (Version 5)
Quarter: 2020Q2

REPORT INFORMATION
  Report Type: Report from Study
  Country: HN (occurrence: HN)
  Receive Date: 20200408
  Receipt Date: 20200625
  Transmission Date: 20200713
  Serious: Yes (Other)
  Sender: FDA-Public Use
  Company Number: HN-BAYER-2020-057181

PATIENT
  Age: 36 Year
  Sex: Female

DRUGS (9)
  1. GABAPENTIN ENACARBIL [Concomitant]
     Active Substance: GABAPENTIN ENACARBIL
     Indication: PAIN
     Dosage: UNK
     Dates: start: 201912
  2. ESOMEPRAZOLE. [Concomitant]
     Active Substance: ESOMEPRAZOLE MAGNESIUM
     Indication: GASTRITIS
     Dosage: 40 MG
     Dates: start: 201911
  3. NEXAVAR [Suspect]
     Active Substance: SORAFENIB
     Indication: HEPATOCELLULAR CARCINOMA
     Dosage: 800 MG DAILY
     Dates: start: 20191122, end: 20200420
  4. STIVARGA [Suspect]
     Active Substance: REGORAFENIB
     Indication: HEPATOCELLULAR CARCINOMA
     Dosage: 160 MG DAILY
     Dates: start: 2020
  5. LEVOTHYROXINE. [Concomitant]
     Active Substance: LEVOTHYROXINE
     Indication: HYPOTHYROIDISM
     Dosage: 100 MCG
     Dates: start: 2002
  6. LANSOPRAZOLE. [Concomitant]
     Active Substance: LANSOPRAZOLE
  7. STIVARGA [Suspect]
     Active Substance: REGORAFENIB
     Indication: HEPATOCELLULAR CARCINOMA
     Dosage: 80 MG DAILY
     Dates: start: 20200425, end: 2020
  8. LOPERAMIDE [Concomitant]
     Active Substance: LOPERAMIDE
  9. GABAPENTIN. [Concomitant]
     Active Substance: GABAPENTIN
     Dosage: UNK

REACTIONS (7)
  - Off label use [None]
  - Headache [None]
  - Burning sensation [Not Recovered/Not Resolved]
  - Injury [Not Recovered/Not Resolved]
  - Neoplasm progression [None]
  - Metastasis [None]
  - Vomiting [None]

NARRATIVE: CASE EVENT DATE: 20200324
